FAERS Safety Report 7269640 (Version 4)
Quarter: 2020Q4

REPORT INFORMATION
  Report Type: Spontaneous
  Country: FR (occurrence: FR)
  Receive Date: 20100203
  Receipt Date: 20201105
  Transmission Date: 20210114
  Serious: Yes (Hospitalization)
  Sender: FDA-Public Use
  Company Number: FR-PFIZER INC-2010008996

PATIENT
  Age: 84 Year
  Sex: Male

DRUGS (7)
  1. RIVOTRIL [Suspect]
     Active Substance: CLONAZEPAM
     Indication: PAIN
     Dosage: UNK
     Route: 048
     Dates: start: 200904
  2. TRAMADOL. [Suspect]
     Active Substance: TRAMADOL
     Indication: PAIN
     Dosage: 100 MG, 2X/DAY
     Route: 048
     Dates: start: 200904
  3. LYRICA [Suspect]
     Active Substance: PREGABALIN
     Indication: PAIN
     Dosage: 300 MG, 2X/DAY (600MG 1XDAY)
     Route: 048
     Dates: start: 200904
  4. APRANAX [Suspect]
     Active Substance: NAPROXEN
     Indication: PAIN
     Dosage: UNK
     Route: 048
     Dates: start: 200904
  5. ZAMUDOL LP [Suspect]
     Active Substance: TRAMADOL HYDROCHLORIDE
     Indication: PAIN
     Dosage: 200 MG, DAILY
     Route: 048
  6. LAROXYL [Suspect]
     Active Substance: AMITRIPTYLINE HYDROCHLORIDE
     Indication: PAIN
     Dosage: UNK
     Route: 048
     Dates: start: 200904
  7. LOVENOX [Concomitant]
     Active Substance: ENOXAPARIN SODIUM
     Dosage: UNK

REACTIONS (8)
  - Cyanosis [Unknown]
  - Overdose [Recovering/Resolving]
  - Vomiting [Unknown]
  - Heart rate increased [Unknown]
  - Somnolence [Unknown]
  - Tachypnoea [Unknown]
  - Blood pressure increased [Unknown]
  - Respiratory distress [Unknown]

NARRATIVE: CASE EVENT DATE: 200904
